FAERS Safety Report 14502628 (Version 1)
Quarter: 2018Q1

REPORT INFORMATION
  Report Type: Spontaneous
  Country: CN (occurrence: CN)
  Receive Date: 20180208
  Receipt Date: 20180208
  Transmission Date: 20180509
  Serious: Yes (Other)
  Sender: FDA-Public Use
  Company Number: CN-FRESENIUS KABI-FK201801474

PATIENT
  Age: 47 Year
  Sex: Male

DRUGS (6)
  1. LIPOVENOES MCT 20% [Suspect]
     Active Substance: EGG PHOSPHOLIPIDS\GLYCERIN\MEDIUM-CHAIN TRIGLYCERIDES\SOYBEAN OIL
     Indication: NUTRITIONAL SUPPLEMENTATION
     Route: 041
     Dates: start: 20171216, end: 20171219
  2. POTASSIUM CHLORIDE. [Concomitant]
     Active Substance: POTASSIUM CHLORIDE
     Indication: MINERAL SUPPLEMENTATION
     Route: 041
     Dates: start: 20171216, end: 20171219
  3. DIPEPTIVEN [Concomitant]
     Active Substance: ALANYL GLUTAMINE
     Indication: NUTRITIONAL SUPPLEMENTATION
     Route: 041
     Dates: start: 20171216, end: 20171219
  4. GLUCOSE INJECTION [Concomitant]
     Active Substance: DEXTROSE
     Indication: DRUG THERAPY
     Route: 041
     Dates: start: 20171216, end: 20171219
  5. NOVAMIN (AMINO ACIDS NOS) [Suspect]
     Active Substance: AMINO ACIDS
     Indication: NUTRITIONAL SUPPLEMENTATION
     Route: 041
     Dates: start: 20171216, end: 20171219
  6. GLUCOSE AND SODIUM CHLORIDE [Concomitant]
     Indication: DRUG THERAPY
     Route: 041
     Dates: start: 20171216, end: 20171219

REACTIONS (2)
  - Rash [Recovered/Resolved]
  - Pruritus [Recovered/Resolved]

NARRATIVE: CASE EVENT DATE: 20171219
